FAERS Safety Report 7169455-6 (Version None)
Quarter: 2010Q4

REPORT INFORMATION
  Report Type: 
  Country: None (occurrence: None)
  Receive Date: 20101217
  Receipt Date: 20101209
  Transmission Date: 20110411
  Serious: Yes (Hospitalization)
  Sender: FDA-Public Use
  Company Number: US-BIOGENIDEC-2010BI043113

PATIENT
  Age: 50 Year
  Sex: Female
  Weight: 137 kg

DRUGS (11)
  1. TYSABRI [Suspect]
     Indication: MULTIPLE SCLEROSIS
     Route: 042
     Dates: start: 20081222
  2. SIMVASTATIN [Concomitant]
  3. GABAPENTIN [Concomitant]
  4. PREVACID [Concomitant]
  5. PROVIGIL [Concomitant]
  6. HYDROCHLOROTHIAZIDE [Concomitant]
  7. WELLBUTRIN [Concomitant]
  8. CALCIUM WITH VITAMIN D [Concomitant]
  9. TOPROL-XL [Concomitant]
  10. AMBIEN CR [Concomitant]
  11. ZOLOFT [Concomitant]

REACTIONS (1)
  - SYNCOPE [None]
